FAERS Safety Report 5398689-6 (Version None)
Quarter: 2007Q3

REPORT INFORMATION
  Report Type: 
  Country: None (occurrence: None)
  Receive Date: 20070726
  Receipt Date: 20060919
  Transmission Date: 20080115
  Serious: No
  Sender: FDA-Public Use
  Company Number: US-AMGEN-US194299

PATIENT
  Age: 70 Year
  Sex: Male
  Weight: 90.5 kg

DRUGS (12)
  1. EPOGEN [Suspect]
     Indication: DIALYSIS
     Route: 042
     Dates: start: 20050808
  2. ASPIRIN [Suspect]
     Route: 065
     Dates: start: 20060125
  3. ZEMPLAR [Concomitant]
     Route: 065
     Dates: start: 20060826
  4. DIOVAN [Concomitant]
     Route: 065
     Dates: start: 20060628
  5. FELODIPINE [Concomitant]
     Route: 065
     Dates: start: 20051118
  6. FOLIC ACID [Concomitant]
     Route: 065
     Dates: start: 20050808
  7. HYDROXYZINE [Concomitant]
     Route: 065
     Dates: start: 20051118
  8. METOPROLOL SUCCINATE [Concomitant]
     Route: 065
     Dates: start: 20050808
  9. MINOXIDIL [Concomitant]
     Route: 065
     Dates: start: 20060628
  10. NEPHRO-VITE [Concomitant]
     Route: 065
     Dates: start: 20050808
  11. PRILOSEC [Concomitant]
     Route: 065
     Dates: start: 20051118
  12. RENAGEL [Concomitant]
     Route: 065
     Dates: start: 20050808

REACTIONS (1)
  - ANAEMIA [None]
